FAERS Safety Report 12229508 (Version 1)
Quarter: 2016Q1

REPORT INFORMATION
  Report Type: Spontaneous
  Country: US (occurrence: None)
  Receive Date: 20160331
  Receipt Date: 20160331
  Transmission Date: 20160526
  Serious: Yes (Hospitalization, Other)
  Sender: FDA-Public Use
  Company Number: None

PATIENT
  Age: 25 Year
  Sex: Female
  Weight: 75 kg

DRUGS (1)
  1. NAPROXEN 500 MG [Suspect]
     Active Substance: NAPROXEN

REACTIONS (7)
  - Musculoskeletal stiffness [None]
  - Chills [None]
  - Syncope [None]
  - Dyspnoea [None]
  - Blood pressure decreased [None]
  - Loss of consciousness [None]
  - Blindness [None]

NARRATIVE: CASE EVENT DATE: 20160329
